FAERS Safety Report 9045313 (Version 3)
Quarter: 2013Q3

REPORT INFORMATION
  Report Type: Spontaneous
  Country: US (occurrence: US)
  Receive Date: 20130131
  Receipt Date: 20130723
  Transmission Date: 20140515
  Serious: Yes (Other)
  Sender: FDA-Public Use
  Company Number: US-PFIZER INC-2013036685

PATIENT
  Age: 61 Year
  Sex: Female
  Weight: 90.7 kg

DRUGS (5)
  1. SUTENT [Suspect]
     Indication: GASTROINTESTINAL STROMAL TUMOUR
     Dosage: 37.5 MG, 1X/DAY
     Route: 048
     Dates: start: 20130102, end: 20130119
  2. SUTENT [Suspect]
     Dosage: 37.5 MG, 1X/DAY
     Route: 048
     Dates: start: 20130121
  3. SUTENT [Suspect]
     Dosage: 50 MG, UNK
  4. SUTENT [Suspect]
     Dosage: 37.5 MG, UNK
  5. CORTISONE [Concomitant]
     Indication: ARTHRITIS
     Dosage: UNK

REACTIONS (18)
  - Blood glucose decreased [Unknown]
  - Presyncope [Unknown]
  - Dysgeusia [Recovering/Resolving]
  - Oral pain [Unknown]
  - Diarrhoea [Recovered/Resolved]
  - Flatulence [Unknown]
  - Palmar-plantar erythrodysaesthesia syndrome [Not Recovered/Not Resolved]
  - Blood glucose increased [Unknown]
  - Hepatic pain [Recovered/Resolved]
  - Platelet count decreased [Recovered/Resolved]
  - Hypothyroidism [Not Recovered/Not Resolved]
  - Anxiety [Unknown]
  - Pain in extremity [Unknown]
  - Gait disturbance [Unknown]
  - Pain [Unknown]
  - Confusional state [Unknown]
  - Tremor [Unknown]
  - Somnolence [Unknown]
